FAERS Safety Report 8964843 (Version 1)
Quarter: 2012Q4

REPORT INFORMATION
  Report Type: 
  Country: TW (occurrence: TW)
  Receive Date: 20121214
  Receipt Date: 20121214
  Transmission Date: 20130627
  Serious: Yes (Other)
  Sender: FDA-Public Use
  Company Number: TW-PFIZER INC-HQ7372403DEC1999

PATIENT
  Age: 56 Year
  Sex: Male

DRUGS (8)
  1. IBUPROFEN [Suspect]
     Indication: GENERAL BODY PAIN
     Dosage: 400 MG, 3 IN 1 DAY
     Route: 048
  2. NAPROXEN [Suspect]
     Indication: LOW BACK PAIN
     Dosage: 250 MG, 3 IN 1 DAY
     Route: 048
  3. NAPROXEN [Suspect]
     Indication: JOINT PAIN
  4. RENITEC [Concomitant]
     Dosage: 20 MG, 1 in 1 DAY
     Route: 065
  5. IMIPRAMINE [Concomitant]
     Dosage: 25 MG/DAY, 74 MG HS
     Route: 065
  6. PROBENECID [Concomitant]
     Dosage: 500 MG, 2 IN 1 DAY
     Route: 065
  7. PROPANOLOL [Concomitant]
     Dosage: 10 MG, 2 IN 1 DAY
     Route: 065
  8. FLUOXETINE [Concomitant]
     Dosage: 20 MG, 1 IN 1 DAY
     Route: 065

REACTIONS (7)
  - Condition aggravated [Recovered/Resolved]
  - Depression [Recovered/Resolved]
  - Aggression [Recovered/Resolved]
  - Suicidal ideation [Recovered/Resolved]
  - Agitation [Recovered/Resolved]
  - Paranoia [Recovered/Resolved]
  - Delusion [Recovered/Resolved]
